FAERS Safety Report 7502018-9 (Version None)
Quarter: 2011Q2

REPORT INFORMATION
  Report Type: 
  Country: None (occurrence: None)
  Receive Date: 20110517
  Receipt Date: 20110510
  Transmission Date: 20111010
  Serious: Yes (Other)
  Sender: FDA-Public Use
  Company Number: 2009EN000015

PATIENT
  Age: 67 Year
  Sex: Male

DRUGS (2)
  1. AMPHOTERICIN B [Suspect]
     Indication: CANDIDA SEPSIS
     Dosage: 350 MG;QD;IV
     Route: 042
     Dates: start: 20080922, end: 20080924
  2. PIRITON [Concomitant]

REACTIONS (6)
  - PULMONARY OEDEMA [None]
  - LUNG DISORDER [None]
  - HYPERTENSION [None]
  - TACHYCARDIA [None]
  - HYPERSENSITIVITY [None]
  - OXYGEN SATURATION DECREASED [None]
